FAERS Safety Report 4290053-6 (Version None)
Quarter: 2004Q1

REPORT INFORMATION
  Report Type: 
  Country: None (occurrence: None)
  Receive Date: 20040209
  Receipt Date: 20040123
  Transmission Date: 20041129
  Serious: Yes (Disabling)
  Sender: FDA-Public Use
  Company Number: 200309904

PATIENT
  Age: 38 Year
  Sex: Female
  Weight: 49.8957 kg

DRUGS (2)
  1. BOTOX PURIFIED NEUROTOXIN COMPLEX [Suspect]
     Indication: SKIN WRINKLING
     Dosage: 24 UNITS PRN IM
     Route: 030
     Dates: start: 20010701, end: 20011219
  2. AMBIEN [Concomitant]

REACTIONS (16)
  - BACK PAIN [None]
  - BREAST MASS [None]
  - BRUXISM [None]
  - DERMAL CYST [None]
  - DYSARTHRIA [None]
  - FACIAL NERVE DISORDER [None]
  - FACIAL PALSY [None]
  - FATIGUE [None]
  - GINGIVAL RECESSION [None]
  - INFLUENZA LIKE ILLNESS [None]
  - INJECTION SITE HAEMORRHAGE [None]
  - INJECTION SITE PAIN [None]
  - MIGRAINE [None]
  - PARAESTHESIA [None]
  - SLEEP DISORDER [None]
  - SYMPATHETIC POSTERIOR CERVICAL SYNDROME [None]
